FAERS Safety Report 11619987 (Version 4)
Quarter: 2015Q4

REPORT INFORMATION
  Report Type: Spontaneous
  Country: US (occurrence: US)
  Receive Date: 20151012
  Receipt Date: 20151124
  Transmission Date: 20160304
  Serious: Yes (Other)
  Sender: FDA-Public Use
  Company Number: US-JNJFOC-20151003929

PATIENT
  Age: 58 Year
  Sex: Female
  Weight: 84.37 kg

DRUGS (2)
  1. METFORMIN [Concomitant]
     Active Substance: METFORMIN HYDROCHLORIDE
     Indication: BLOOD GLUCOSE ABNORMAL
     Route: 048
     Dates: start: 201505
  2. SIMPONI [Suspect]
     Active Substance: GOLIMUMAB
     Indication: PSORIATIC ARTHROPATHY
     Route: 058
     Dates: start: 2010

REACTIONS (7)
  - Drug dose omission [Not Recovered/Not Resolved]
  - Device malfunction [Unknown]
  - Accidental exposure to product [Recovered/Resolved]
  - Stress [Unknown]
  - Psoriatic arthropathy [Recovered/Resolved]
  - Diabetes mellitus [Not Recovered/Not Resolved]
  - Drug effect decreased [Not Recovered/Not Resolved]

NARRATIVE: CASE EVENT DATE: 201506
